FAERS Safety Report 16941794 (Version 1)
Quarter: 2019Q4

REPORT INFORMATION
  Report Type: Spontaneous
  Country: UM (occurrence: UM)
  Receive Date: 20190828
  Receipt Date: 20190828
  Transmission Date: 20200122
  Serious: Yes (Hospitalization)
  Sender: FDA-Public Use
  Company Number: None

PATIENT
  Age: 77 Year
  Sex: Female
  Weight: 54.4 kg

DRUGS (1)
  1. VITAMIN D3 [Suspect]
     Active Substance: CHOLECALCIFEROL
     Route: 048
     Dates: start: 20190814

REACTIONS (4)
  - Neutrophil count decreased [None]
  - Protein urine present [None]
  - Pyrexia [None]
  - Blood pressure diastolic decreased [None]

NARRATIVE: CASE EVENT DATE: 20190825
